FAERS Safety Report 5489815-9 (Version None)
Quarter: 2007Q4

REPORT INFORMATION
  Report Type: 
  Country: None (occurrence: None)
  Receive Date: 20071017
  Receipt Date: 20071017
  Transmission Date: 20080405
  Serious: No
  Sender: FDA-Public Use
  Company Number: None

PATIENT
  Age: 56 Year
  Sex: Female

DRUGS (4)
  1. ISONIAZID [Suspect]
     Dates: start: 20050801, end: 20060527
  2. SYNTHROID [Concomitant]
  3. VITAMINS [Concomitant]
  4. IRON [Concomitant]

REACTIONS (6)
  - ASTHENIA [None]
  - ENCEPHALOPATHY [None]
  - JAUNDICE [None]
  - LETHARGY [None]
  - LIVER INJURY [None]
  - NAUSEA [None]
